FAERS Safety Report 12348577 (Version 1)
Quarter: 2016Q2

REPORT INFORMATION
  Report Type: Report from Study
  Country: ES (occurrence: ES)
  Receive Date: 20160509
  Receipt Date: 20160509
  Transmission Date: 20160815
  Serious: Yes (Other)
  Sender: FDA-Public Use
  Company Number: ES-BAUSCH-BL-2016-010520

PATIENT

DRUGS (2)
  1. CALCIUM/VITAMIN-D [Concomitant]
     Indication: SUPPLEMENTATION THERAPY
     Route: 048
  2. DEXAMETHASONE. [Suspect]
     Active Substance: DEXAMETHASONE
     Indication: ALOPECIA AREATA
     Dosage: 0.1/MG/KG/DAY
     Route: 048

REACTIONS (3)
  - Cushing^s syndrome [Unknown]
  - Skin striae [Unknown]
  - Irritability [Unknown]
